FAERS Safety Report 7279008-7 (Version None)
Quarter: 2011Q1

REPORT INFORMATION
  Report Type: 
  Country: None (occurrence: None)
  Receive Date: 20110207
  Receipt Date: 20110126
  Transmission Date: 20110831
  Serious: Yes (Hospitalization)
  Sender: FDA-Public Use
  Company Number: PHHO2010CA17316

PATIENT
  Sex: Female

DRUGS (6)
  1. ACZ885 [Suspect]
     Indication: JUVENILE ARTHRITIS
     Dosage: 4MG/KG Q4W
     Route: 058
     Dates: start: 20101029, end: 20101029
  2. BLINDED PLACEBO [Suspect]
     Indication: JUVENILE ARTHRITIS
     Dosage: NO TREATMENT
  3. ANAKINRA [Concomitant]
     Dosage: 100 MG, QD
     Dates: start: 20101203
  4. BLINDED NO TREATMENT RECEIVED [Suspect]
     Indication: JUVENILE ARTHRITIS
     Dosage: NO TREATMENT
  5. BACTRIM [Suspect]
     Dosage: UNK
     Dates: start: 20101105, end: 20101113
  6. BLINDED ACZ885 [Suspect]
     Indication: JUVENILE ARTHRITIS
     Dosage: NO TREATMENT

REACTIONS (19)
  - BLOOD LACTATE DEHYDROGENASE INCREASED [None]
  - PYREXIA [None]
  - POLLAKIURIA [None]
  - VIRAL INFECTION [None]
  - HYPERSENSITIVITY [None]
  - LIVER FUNCTION TEST ABNORMAL [None]
  - ESCHERICHIA URINARY TRACT INFECTION [None]
  - PLATELET COUNT DECREASED [None]
  - PRURITUS [None]
  - RASH [None]
  - FIBRIN D DIMER INCREASED [None]
  - C-REACTIVE PROTEIN INCREASED [None]
  - DYSURIA [None]
  - ERYTHEMA [None]
  - HISTIOCYTOSIS HAEMATOPHAGIC [None]
  - SERUM FERRITIN INCREASED [None]
  - WHITE BLOOD CELL COUNT DECREASED [None]
  - BLOOD TRIGLYCERIDES INCREASED [None]
  - ABDOMINAL PAIN UPPER [None]
